FAERS Safety Report 7055773-9 (Version None)
Quarter: 2010Q4

REPORT INFORMATION
  Report Type: 
  Country: None (occurrence: None)
  Receive Date: 20101018
  Receipt Date: 20100930
  Transmission Date: 20110411
  Serious: Yes (Hospitalization, Other)
  Sender: FDA-Public Use
  Company Number: ACO_02514_2010

PATIENT
  Sex: Male
  Weight: 86.1834 kg

DRUGS (9)
  1. AMPYRA [Suspect]
     Indication: GAIT DISTURBANCE
     Dosage: (10 MG 1X/12 HOURS ORAL)
     Route: 048
     Dates: start: 20100401
  2. REBIF [Suspect]
     Indication: MULTIPLE SCLEROSIS
     Dosage: (DF)
     Dates: start: 20100901, end: 20100925
  3. ZOLOFT [Suspect]
     Indication: DEPRESSION
     Dosage: (50 MG QD ORAL)
     Route: 048
  4. MIRTAZAPINE [Suspect]
     Indication: DEPRESSION
     Dosage: (30 MG QD ORAL)
     Route: 048
  5. FLOMAX /01280302/ [Concomitant]
  6. BACTRIM [Concomitant]
  7. BACLOFEN [Concomitant]
  8. VICODIN [Concomitant]
  9. ATIVAN [Concomitant]

REACTIONS (8)
  - CHEST PAIN [None]
  - HOT FLUSH [None]
  - HUNGER [None]
  - MALAISE [None]
  - PALPITATIONS [None]
  - PANIC ATTACK [None]
  - PARAESTHESIA [None]
  - SOMNOLENCE [None]
